FAERS Safety Report 5939960-6 (Version None)
Quarter: 2008Q4

REPORT INFORMATION
  Report Type: 
  Country: None (occurrence: None)
  Receive Date: 20081104
  Receipt Date: 20081024
  Transmission Date: 20090506
  Serious: Yes (Hospitalization)
  Sender: FDA-Public Use
  Company Number: BR-ROCHE-593797

PATIENT
  Sex: Female
  Weight: 51 kg

DRUGS (2)
  1. ROACUTAN [Suspect]
     Indication: ACNE
     Route: 048
     Dates: start: 20070806, end: 20071001
  2. ROACUTAN [Suspect]
     Dosage: STRENGTH: 20 MG
     Route: 048
     Dates: start: 20080919, end: 20081011

REACTIONS (4)
  - ACNE [None]
  - HEPATIC CIRRHOSIS [None]
  - HEPATITIS [None]
  - INFLUENZA [None]
